FAERS Safety Report 9308834 (Version 1)
Quarter: 2013Q2

REPORT INFORMATION
  Report Type: Spontaneous
  Country: US (occurrence: US)
  Receive Date: 20130524
  Receipt Date: 20130524
  Transmission Date: 20140414
  Serious: Yes (Life-Threatening, Hospitalization, Other)
  Sender: FDA-Public Use
  Company Number: US-009507513-1305USA013169

PATIENT
  Age: 66 Year
  Sex: Male

DRUGS (5)
  1. JANUVIA [Suspect]
     Indication: DIABETES MELLITUS
     Dosage: 100 MG, ONCE PER DAY AT UNSPECIFIED TIME
     Route: 048
  2. ASPIRIN [Concomitant]
     Dosage: ASPIRIN PER DAY
  3. EXFORGE [Concomitant]
  4. LISINOPRIL (+) HYDROCHLOROTHIAZIDE [Concomitant]
  5. SIMVASTATIN TABLETS, USP [Concomitant]
     Dosage: ONCE PER DAY

REACTIONS (1)
  - Pancreatitis acute [Recovered/Resolved]
